FAERS Safety Report 17304148 (Version 1)
Quarter: 2020Q1

REPORT INFORMATION
  Report Type: Spontaneous
  Country: US (occurrence: US)
  Receive Date: 20200122
  Receipt Date: 20200122
  Transmission Date: 20200409
  Serious: No
  Sender: FDA-Public Use
  Company Number: US-BEH-2020111977

PATIENT
  Age: 66 Year
  Sex: Female

DRUGS (14)
  1. TOPIRAMATE. [Concomitant]
     Active Substance: TOPIRAMATE
     Dosage: 25 MILLIGRAM
     Route: 065
  2. ZYRTEC [Concomitant]
     Active Substance: CETIRIZINE HYDROCHLORIDE
     Dosage: 10 MILLIGRAM
     Route: 065
  3. HYDROCODONE [Concomitant]
     Active Substance: HYDROCODONE
     Dosage: 10-325 MILLIGRAM
     Route: 065
  4. BUSPIRONE HCL [Concomitant]
     Active Substance: BUSPIRONE HYDROCHLORIDE
     Dosage: 15 MILLIGRAM
     Route: 065
  5. LYRICA [Concomitant]
     Active Substance: PREGABALIN
     Dosage: 75 MILLIGRAM
     Route: 065
  6. ATORVASTATIN [Concomitant]
     Active Substance: ATORVASTATIN
     Dosage: 10 MILLIGRAM
     Route: 065
  7. TRAZODONE HYDROCHLORIDE. [Concomitant]
     Active Substance: TRAZODONE HYDROCHLORIDE
     Dosage: 50 MILLIGRAM
     Route: 065
  8. LIDOCAINE. [Concomitant]
     Active Substance: LIDOCAINE
  9. PRIVIGEN [Suspect]
     Active Substance: HUMAN IMMUNOGLOBULIN G
     Indication: MIGRAINE
     Dosage: 115 GRAM, DAILY FOR TWO DAYS ONCE A MONTH
     Route: 042
     Dates: start: 2017
  10. IMODIUM A-D [Concomitant]
     Active Substance: LOPERAMIDE HYDROCHLORIDE
     Dosage: 2 MILLIGRAM
     Route: 065
  11. FOLIC ACID. [Concomitant]
     Active Substance: FOLIC ACID
     Dosage: 1 MILLIGRAM
     Route: 065
  12. METHOTREXATE. [Concomitant]
     Active Substance: METHOTREXATE
  13. SUDAFED NASAL DECONGESTANT MAXIMUM STRENGTH [Concomitant]
     Active Substance: PSEUDOEPHEDRINE HYDROCHLORIDE
     Dosage: 30 MILLIGRAM
     Route: 065
  14. GABAPENTIN. [Concomitant]
     Active Substance: GABAPENTIN
     Dosage: 40 MILLIGRAM
     Route: 065

REACTIONS (10)
  - Headache [Recovered/Resolved]
  - Asthenia [Recovered/Resolved]
  - No adverse event [Unknown]
  - Product use in unapproved indication [Unknown]
  - Bed rest [Recovered/Resolved]
  - Vitreous floaters [Recovered/Resolved]
  - Foot deformity [Recovered/Resolved]
  - Pain in extremity [Recovered/Resolved]
  - Vision blurred [Recovered/Resolved]
  - Bed rest [Recovered/Resolved]

NARRATIVE: CASE EVENT DATE: 202001
